FAERS Safety Report 18099353 (Version 2)
Quarter: 2020Q3

REPORT INFORMATION
  Report Type: Report from Study
  Country: US (occurrence: US)
  Receive Date: 20200731
  Receipt Date: 20200807
  Transmission Date: 20201103
  Serious: Yes (Hospitalization)
  Sender: FDA-Public Use
  Company Number: US-ACTELION-A-US2015-122031

PATIENT
  Age: 69 Year
  Sex: Female
  Weight: 94.79 kg

DRUGS (4)
  1. OPSUMIT [Suspect]
     Active Substance: MACITENTAN
     Dosage: 10 MG, QD
     Route: 048
     Dates: start: 20150217
  2. OPSUMIT [Suspect]
     Active Substance: MACITENTAN
     Indication: PULMONARY ARTERIAL HYPERTENSION
     Dosage: 10 MG, QD
     Route: 048
     Dates: start: 20181129
  3. DILTIAZEM. [Concomitant]
     Active Substance: DILTIAZEM
  4. ADEMPAS [Suspect]
     Active Substance: RIOCIGUAT
     Indication: PRODUCT USED FOR UNKNOWN INDICATION
     Dosage: 2.5 MG, TID
     Route: 065

REACTIONS (17)
  - Hernia repair [Unknown]
  - Ear discomfort [Unknown]
  - Ear infection [Not Recovered/Not Resolved]
  - Hypotension [Unknown]
  - Cough [Unknown]
  - Sinusitis [Recovered/Resolved]
  - Myalgia [Unknown]
  - Nasal congestion [Unknown]
  - Gait disturbance [Unknown]
  - Epistaxis [Unknown]
  - Fatigue [Unknown]
  - Gallbladder disorder [Unknown]
  - Weight increased [Unknown]
  - Nasopharyngitis [Unknown]
  - Atrial fibrillation [Unknown]
  - Intestinal obstruction [Unknown]
  - Asthenia [Unknown]

NARRATIVE: CASE EVENT DATE: 20161014
